FAERS Safety Report 19162580 (Version 1)
Quarter: 2021Q2

REPORT INFORMATION
  Report Type: Spontaneous
  Country: US (occurrence: US)
  Receive Date: 20210421
  Receipt Date: 20210421
  Transmission Date: 20210717
  Serious: Yes (Other)
  Sender: FDA-Public Use
  Company Number: NVSC2021US084003

PATIENT
  Sex: Female

DRUGS (2)
  1. ARIMIDEX [Concomitant]
     Active Substance: ANASTROZOLE
     Indication: PRODUCT USED FOR UNKNOWN INDICATION
     Dosage: UNK
     Route: 065
  2. XIIDRA [Suspect]
     Active Substance: LIFITEGRAST
     Indication: PRODUCT USED FOR UNKNOWN INDICATION
     Dosage: 5 %, BID
     Route: 065
     Dates: start: 20210412

REACTIONS (7)
  - Cardiac flutter [Unknown]
  - Nervousness [Unknown]
  - Dysgeusia [Unknown]
  - Dizziness [Unknown]
  - Headache [Unknown]
  - Feeling jittery [Unknown]
  - Dyspnoea [Unknown]
